FAERS Safety Report 11732720 (Version 1)
Quarter: 2015Q4

REPORT INFORMATION
  Report Type: Spontaneous
  Country: US (occurrence: US)
  Receive Date: 20151110
  Receipt Date: 20151110
  Transmission Date: 20160304
  Serious: No
  Sender: FDA-Public Use
  Company Number: US-ELI_LILLY_AND_COMPANY-US201110002567

PATIENT
  Age: 86 Year
  Sex: Female

DRUGS (4)
  1. FORTEO [Suspect]
     Active Substance: TERIPARATIDE
     Dosage: 20 UG, QD
     Route: 065
  2. FORTEO [Suspect]
     Active Substance: TERIPARATIDE
     Indication: OSTEOPOROSIS
     Dosage: 20 UG, QD
     Route: 065
     Dates: start: 20110907
  3. FORTEO [Suspect]
     Active Substance: TERIPARATIDE
     Dosage: 20 UG, QD
     Route: 065
  4. FORTEO [Suspect]
     Active Substance: TERIPARATIDE
     Dosage: 20 UG, QD
     Route: 065

REACTIONS (17)
  - Nasopharyngitis [Unknown]
  - Stomatitis [Unknown]
  - Dacryostenosis acquired [Recovered/Resolved]
  - Hypoacusis [Unknown]
  - Cough [Unknown]
  - Feeling abnormal [Unknown]
  - Nasal congestion [Unknown]
  - Gastrooesophageal reflux disease [Unknown]
  - Eye pain [Unknown]
  - Cataract [Unknown]
  - Discomfort [Recovered/Resolved]
  - Dry eye [Unknown]
  - Foot fracture [Recovering/Resolving]
  - Rhinorrhoea [Unknown]
  - Dry throat [Unknown]
  - Tooth repair [Unknown]
  - Sneezing [Unknown]

NARRATIVE: CASE EVENT DATE: 20110908
